FAERS Safety Report 9159774 (Version 2)
Quarter: 2013Q2

REPORT INFORMATION
  Report Type: Spontaneous
  Country: US (occurrence: None)
  Receive Date: 20130219
  Receipt Date: 20130619
  Transmission Date: 20140414
  Serious: Yes (Hospitalization, Other)
  Sender: FDA-Public Use
  Company Number: TCI2013A00734

PATIENT
  Sex: 0

DRUGS (4)
  1. NESINA [Suspect]
     Indication: BLOOD GLUCOSE ABNORMAL
     Dosage: 25MG (25MG, 1 IN 1 D)
     Route: 048
     Dates: start: 20121107, end: 20130112
  2. DIART (AZOSEMIDE) [Concomitant]
  3. WARFARIN (WARFARIN POTASSIUM) [Concomitant]
  4. MAINTOWA (BISOPROLOL PUMARATE) [Concomitant]

REACTIONS (4)
  - International normalised ratio increased [None]
  - Upper gastrointestinal haemorrhage [None]
  - Pancreatitis acute [None]
  - Blood glucose increased [None]
